FAERS Safety Report 5371012-9 (Version None)
Quarter: 2007Q2

REPORT INFORMATION
  Report Type: 
  Country: None (occurrence: None)
  Receive Date: 20070626
  Receipt Date: 20070614
  Transmission Date: 20071010
  Serious: Yes (Other)
  Sender: FDA-Public Use
  Company Number: FR-PFIZER INC-2007039282

PATIENT
  Sex: Female
  Weight: 65 kg

DRUGS (5)
  1. PREGABALIN [Suspect]
     Indication: SCIATICA
     Route: 048
     Dates: start: 20070321, end: 20070510
  2. PREGABALIN [Suspect]
     Indication: NEURALGIA
  3. TRAMADOL HCL [Concomitant]
     Indication: DIARRHOEA
  4. IMODIUM [Concomitant]
     Indication: DIARRHOEA
  5. TRAMADOL HCL [Concomitant]
     Route: 048

REACTIONS (1)
  - TACHYCARDIA PAROXYSMAL [None]
